FAERS Safety Report 5338387-8 (Version None)
Quarter: 2007Q2

REPORT INFORMATION
  Report Type: 
  Country: None (occurrence: None)
  Receive Date: 20070322
  Receipt Date: 20061004
  Transmission Date: 20071010
  Serious: Yes (Other)
  Sender: FDA-Public Use
  Company Number: 200611909BCC

PATIENT
  Age: 71 Year
  Sex: Male
  Weight: 99.7913 kg

DRUGS (6)
  1. ALEVE [Suspect]
     Indication: GOUT
     Dosage: SEE IMAGE
     Route: 048
     Dates: start: 20060515, end: 20060522
  2. ALLOPURINOL [Suspect]
     Indication: GOUT
  3. BAYER LOSE DOSE ASPIRIN (ACETYLSALICYLIC ACID) [Suspect]
     Indication: PROPHYLAXIS
     Dosage: 81 MG, QD, ORAL
     Route: 048
     Dates: start: 20060101, end: 20060604
  4. OMACOR [OMEGA-3 MARINE TRIGLYCERIDES] [Concomitant]
  5. MICARDIS [Concomitant]
  6. ZEBETA [Concomitant]

REACTIONS (5)
  - ABDOMINAL DISTENSION [None]
  - LOCAL SWELLING [None]
  - NAUSEA [None]
  - RECTAL HAEMORRHAGE [None]
  - SWELLING FACE [None]
